FAERS Safety Report 7907564-1 (Version None)
Quarter: 2011Q4

REPORT INFORMATION
  Report Type: 
  Country: None (occurrence: None)
  Receive Date: 20111110
  Receipt Date: 20111103
  Transmission Date: 20120403
  Serious: Yes (Hospitalization)
  Sender: FDA-Public Use
  Company Number: PHHY2011DE85527

PATIENT
  Sex: Male
  Weight: 84 kg

DRUGS (5)
  1. EXJADE [Suspect]
     Indication: IRON OVERLOAD
     Dosage: 1500 MG, UNK
     Route: 048
     Dates: start: 20110906, end: 20110925
  2. FILGRASTIM [Concomitant]
     Indication: NEUTROPENIA
     Dosage: 48 MIO E /0.5 ML
     Route: 058
     Dates: start: 20110113
  3. PREDNISOLONE [Concomitant]
     Indication: IMMUNOSUPPRESSION
     Dosage: 5 MG, DAILY
     Route: 048
     Dates: start: 20110715
  4. ALLOPURINOL [Concomitant]
     Indication: HYPERURICAEMIA
     Dosage: 300 MG, DAILY
     Route: 048
     Dates: start: 20110914, end: 20110925
  5. RESTEX [Concomitant]
     Indication: RESTLESS LEGS SYNDROME
     Dosage: 100 MG, UNK
     Route: 048
     Dates: start: 20110925, end: 20111005

REACTIONS (2)
  - DYSPNOEA [None]
  - PNEUMONIA [None]
